FAERS Safety Report 7685909-8 (Version None)
Quarter: 2011Q3

REPORT INFORMATION
  Report Type: 
  Country: None (occurrence: None)
  Receive Date: 20110816
  Receipt Date: 20110811
  Transmission Date: 20111222
  Serious: Yes (Other)
  Sender: FDA-Public Use
  Company Number: AU-ELI_LILLY_AND_COMPANY-AU201107005854

PATIENT
  Sex: Male
  Weight: 112 kg

DRUGS (11)
  1. BYETTA [Suspect]
     Indication: TYPE 2 DIABETES MELLITUS
     Dosage: 5 UG, BID
     Route: 058
     Dates: start: 20110401, end: 20110501
  2. GLICLAZIDE [Concomitant]
  3. AVAPRO HCT [Concomitant]
  4. LASIX [Concomitant]
  5. RAMIPRIL [Concomitant]
  6. NORVASC [Concomitant]
  7. BYETTA [Suspect]
     Dosage: 10 UG, BID
     Route: 058
     Dates: start: 20110501
  8. BYETTA [Suspect]
     Dosage: 5 UG, BID
     Route: 058
     Dates: end: 20110619
  9. MINIPRESS [Concomitant]
  10. METFORMIN HCL [Concomitant]
  11. SIMAVASTATIN [Concomitant]

REACTIONS (3)
  - NAUSEA [None]
  - RENAL FAILURE [None]
  - VOMITING [None]
